FAERS Safety Report 4467047-0 (Version None)
Quarter: 2004Q4

REPORT INFORMATION
  Report Type: 
  Country: None (occurrence: None)
  Receive Date: 20041004
  Receipt Date: 20040928
  Transmission Date: 20050328
  Serious: Yes (Other)
  Sender: FDA-Public Use
  Company Number: 2004-09-1750

PATIENT
  Age: 53 Year
  Sex: Male
  Weight: 68.0396 kg

DRUGS (1)
  1. PEG-INTRON [Suspect]
     Indication: HEPATITIS C
     Dosage: 45 MCG QWK SUBCUTANEOUS
     Route: 058
     Dates: start: 20040114, end: 20040920

REACTIONS (6)
  - CONJUNCTIVITIS [None]
  - CORNEAL ULCER [None]
  - DISEASE RECURRENCE [None]
  - FOREIGN BODY TRAUMA [None]
  - INGROWN HAIR [None]
  - VISUAL ACUITY REDUCED [None]
